FAERS Safety Report 11966286 (Version 1)
Quarter: 2016Q1

REPORT INFORMATION
  Report Type: Spontaneous
  Country: US (occurrence: None)
  Receive Date: 20160126
  Receipt Date: 20160126
  Transmission Date: 20160526
  Serious: Yes (Life-Threatening, Hospitalization, Disabling, Other)
  Sender: FDA-Public Use
  Company Number: None

PATIENT
  Age: 30 Year
  Sex: Male

DRUGS (2)
  1. RISPERIDONE. [Suspect]
     Active Substance: RISPERIDONE
     Indication: SCHIZOPHRENIA
     Dosage: 1 MG/3MG, 3 PILLS TWICE DAILY AND AT BEDTIME BY MOUTH
     Route: 048
     Dates: start: 19951015, end: 20091218
  2. RISPERDAL CONSTA [Suspect]
     Active Substance: RISPERIDONE

REACTIONS (10)
  - Insomnia [None]
  - Suicidal ideation [None]
  - Homicidal ideation [None]
  - Dyspnoea [None]
  - Amnesia [None]
  - Dysphagia [None]
  - Pyrexia [None]
  - Muscle disorder [None]
  - Dyskinesia [None]
  - Confusional state [None]
